FAERS Safety Report 14620704 (Version 1)
Quarter: 2018Q1

REPORT INFORMATION
  Report Type: Other
  Country: US (occurrence: US)
  Receive Date: 20180309
  Receipt Date: 20180309
  Transmission Date: 20180509
  Serious: Yes (Other)
  Sender: FDA-Public Use
  Company Number: US-INTERCEPT-PMOCA2018000333

PATIENT

DRUGS (2)
  1. URSODIOL. [Concomitant]
     Active Substance: URSODIOL
     Dosage: 5 TABLET, QD
  2. OCALIVA [Suspect]
     Active Substance: OBETICHOLIC ACID
     Indication: PRIMARY BILIARY CHOLANGITIS
     Dosage: 5 MG, QD
     Route: 048
     Dates: start: 20161219

REACTIONS (1)
  - Neoplasm malignant [Unknown]
